FAERS Safety Report 15685081 (Version 1)
Quarter: 2018Q4

REPORT INFORMATION
  Report Type: Spontaneous
  Country: CA (occurrence: CA)
  Receive Date: 20181204
  Receipt Date: 20181204
  Transmission Date: 20190205
  Serious: Yes (Other)
  Sender: FDA-Public Use
  Company Number: CA-PFIZER INC-2017373062

PATIENT
  Age: 78 Year
  Sex: Female

DRUGS (3)
  1. METHOTREXATE SODIUM. [Suspect]
     Active Substance: METHOTREXATE SODIUM
     Indication: RHEUMATOID ARTHRITIS
     Dosage: 8 PILLS, WEEKLY
     Route: 048
  2. FOLIC ACID. [Concomitant]
     Active Substance: FOLIC ACID
     Dosage: UNK
  3. XELJANZ [Concomitant]
     Active Substance: TOFACITINIB CITRATE
     Indication: RHEUMATOID ARTHRITIS
     Dosage: 5 MG, 2X/DAY
     Route: 048
     Dates: start: 20171129

REACTIONS (14)
  - Mass [Unknown]
  - Dyspnoea [Unknown]
  - Hepatitis B [Recovered/Resolved]
  - Gait disturbance [Recovered/Resolved]
  - Facial bones fracture [Unknown]
  - Product dose omission [Unknown]
  - Cough [Unknown]
  - Drug effect incomplete [Unknown]
  - Asthenia [Recovered/Resolved]
  - Pain in extremity [Not Recovered/Not Resolved]
  - Anosmia [Unknown]
  - Fall [Recovered/Resolved]
  - Ageusia [Unknown]
  - Aphonia [Unknown]

NARRATIVE: CASE EVENT DATE: 2017
